FAERS Safety Report 16482862 (Version 1)
Quarter: 2019Q2

REPORT INFORMATION
  Report Type: Spontaneous
  Country: TH (occurrence: TH)
  Receive Date: 20190627
  Receipt Date: 20190627
  Transmission Date: 20190711
  Serious: Yes (Death, Life-Threatening)
  Sender: FDA-Public Use
  Company Number: TH-BAXTER-2019BAX012610

PATIENT
  Age: 60 Year
  Sex: Female

DRUGS (1)
  1. DIANEAL PD-2 WITH DEXTROSE [Suspect]
     Active Substance: CALCIUM CHLORIDE\DEXTROSE\MAGNESIUM CHLORIDE\SODIUM CHLORIDE\SODIUM LACTATE
     Indication: END STAGE RENAL DISEASE
     Dosage: 4 CYCLES IN 11 HR
     Route: 033
     Dates: start: 20130315, end: 201905

REACTIONS (7)
  - Speech disorder [Unknown]
  - Blood pressure decreased [Unknown]
  - Feeding disorder [Unknown]
  - Electrolyte imbalance [Unknown]
  - Myalgia [Unknown]
  - End stage renal disease [Fatal]
  - Blood glucose decreased [Unknown]

NARRATIVE: CASE EVENT DATE: 201905
